FAERS Safety Report 4281761-1 (Version None)
Quarter: 2004Q1

REPORT INFORMATION
  Report Type: 
  Country: None (occurrence: None)
  Receive Date: 20040128
  Receipt Date: 20040113
  Transmission Date: 20041129
  Serious: Yes (Other)
  Sender: FDA-Public Use
  Company Number: 2004-06556

PATIENT
  Age: 42 Year
  Sex: Male
  Weight: 77 kg

DRUGS (4)
  1. VIREAD [Suspect]
     Indication: HIV INFECTION
     Dosage: 300 MG QD PO
     Route: 048
     Dates: start: 20030501, end: 20031201
  2. EPIVIR [Concomitant]
  3. SUSTIVA [Concomitant]
  4. BACTRIM [Concomitant]

REACTIONS (2)
  - BLOOD CREATININE INCREASED [None]
  - HYPERPHOSPHATAEMIA [None]
